FAERS Safety Report 17273544 (Version 3)
Quarter: 2020Q1

REPORT INFORMATION
  Report Type: Spontaneous
  Country: IT (occurrence: IT)
  Receive Date: 20200115
  Receipt Date: 20200217
  Transmission Date: 20200409
  Serious: Yes (Hospitalization, Other)
  Sender: FDA-Public Use
  Company Number: IT-ARRAY-2020-07160

PATIENT

DRUGS (3)
  1. CETUXIMAB. [Suspect]
     Active Substance: CETUXIMAB
     Indication: COLON CANCER METASTATIC
     Dosage: UNK UNK, UNKNOWN
     Route: 065
  2. BRAFTOVI [Suspect]
     Active Substance: ENCORAFENIB
     Indication: COLON CANCER METASTATIC
     Dosage: 300 MG, QD (1/DAY)
     Route: 048
     Dates: start: 20191223, end: 20200107
  3. MEKTOVI [Suspect]
     Active Substance: BINIMETINIB
     Indication: COLON CANCER METASTATIC
     Dosage: 90 MG, QD (1/DAY)
     Route: 048
     Dates: start: 20191223, end: 20200107

REACTIONS (5)
  - Pneumonitis [Not Recovered/Not Resolved]
  - Anaemia [Recovering/Resolving]
  - Product use in unapproved indication [Unknown]
  - Gastrointestinal haemorrhage [Recovered/Resolved]
  - Interstitial lung disease [Not Recovered/Not Resolved]

NARRATIVE: CASE EVENT DATE: 20191223
